FAERS Safety Report 9647684 (Version 1)
Quarter: 2013Q4

REPORT INFORMATION
  Report Type: Spontaneous
  Country: GB (occurrence: GB)
  Receive Date: 20131028
  Receipt Date: 20131028
  Transmission Date: 20140711
  Serious: Yes (Disabling)
  Sender: FDA-Public Use
  Company Number: GB-BRACCO-000786

PATIENT
  Age: 73 Year
  Sex: Female
  Weight: 53 kg

DRUGS (15)
  1. PREDNISOLON [Concomitant]
  2. ALVERINE CITRATE [Concomitant]
  3. CALCICHEW D3 [Concomitant]
  4. FOLIC ACID [Concomitant]
  5. LANSOPRAZOLE [Concomitant]
  6. MAGNESIUM HYDROXIDE [Concomitant]
  7. BARIUM SULFATE [Suspect]
     Indication: DIAGNOSTIC PROCEDURE
     Route: 048
     Dates: start: 20131003, end: 20131003
  8. NUTRIENTS NOS [Concomitant]
  9. DIFFLAM [Concomitant]
  10. FERROUS FUMARATE [Concomitant]
  11. FORCEVAL [Concomitant]
  12. LISINOPRIL [Concomitant]
  13. ZAPAIN [Concomitant]
  14. LEVOTHYROXINE SODIUM [Concomitant]
  15. METOJECT [Concomitant]

REACTIONS (4)
  - Abdominal distension [Not Recovered/Not Resolved]
  - Abdominal pain [Not Recovered/Not Resolved]
  - Malaise [Not Recovered/Not Resolved]
  - Eye pain [Not Recovered/Not Resolved]
